FAERS Safety Report 5409653-2 (Version None)
Quarter: 2007Q3

REPORT INFORMATION
  Report Type: 
  Country: None (occurrence: None)
  Receive Date: 20070807
  Receipt Date: 20070730
  Transmission Date: 20080115
  Serious: Yes (Hospitalization)
  Sender: FDA-Public Use
  Company Number: 163-21880-07071684

PATIENT
  Sex: Female

DRUGS (5)
  1. REVLIMID [Suspect]
     Indication: MULTIPLE MYELOMA
     Dosage: 5 MG, 1 IN 1 D, ORAL
     Route: 048
     Dates: start: 20061025, end: 20070101
  2. NAPROXEN [Concomitant]
  3. CYCLOBENZAPRINE [Concomitant]
  4. GABAPENTIN [Concomitant]
  5. COUMADIN [Concomitant]

REACTIONS (3)
  - DIALYSIS [None]
  - HEADACHE [None]
  - MALAISE [None]
